FAERS Safety Report 25654906 (Version 1)
Quarter: 2025Q3

REPORT INFORMATION
  Report Type: Spontaneous
  Country: US (occurrence: None)
  Receive Date: 20250806
  Receipt Date: 20250806
  Transmission Date: 20251020
  Serious: Yes (Other)
  Sender: FDA-CTU
  Company Number: None

PATIENT
  Age: 54 Year
  Sex: Female

DRUGS (1)
  1. RINVOQ [Suspect]
     Active Substance: UPADACITINIB
     Indication: Sarcoidosis
     Dosage: 15 MG DAILY ORAL ?
     Route: 048
     Dates: start: 20240901, end: 20250714

REACTIONS (3)
  - Lupus-like syndrome [None]
  - Therapy cessation [None]
  - Antinuclear antibody positive [None]

NARRATIVE: CASE EVENT DATE: 20250714
